FAERS Safety Report 5132222-9 (Version None)
Quarter: 2006Q4

REPORT INFORMATION
  Report Type: 
  Country: None (occurrence: None)
  Receive Date: 20061017
  Receipt Date: 20061002
  Transmission Date: 20070319
  Serious: No
  Sender: FDA-Public Use
  Company Number: US200609001412

PATIENT
  Age: 88 Year
  Sex: Female

DRUGS (5)
  1. FORTEO [Suspect]
     Indication: OSTEOPOROSIS
     Dosage: 20 UG, DAILY (1/D)
     Dates: start: 20040827
  2. FORTEO [Concomitant]
  3. SYNTHROID [Concomitant]
  4. DIOVAN [Concomitant]
  5. NIFEDIPINE [Concomitant]

REACTIONS (3)
  - CALCIUM IONISED INCREASED [None]
  - LABORATORY TEST INTERFERENCE [None]
  - PHARMACEUTICAL PRODUCT COMPLAINT [None]
